FAERS Safety Report 9502205 (Version 1)
Quarter: 2013Q3

REPORT INFORMATION
  Report Type: Spontaneous
  Country: US (occurrence: US)
  Receive Date: 20130906
  Receipt Date: 20130906
  Transmission Date: 20140515
  Serious: No
  Sender: FDA-Public Use
  Company Number: US-009507513-1309USA001818

PATIENT
  Age: 34 Year
  Sex: Female

DRUGS (1)
  1. NEXPLANON [Suspect]
     Indication: CONTRACEPTION
     Dosage: ONE ROD, UNK
     Route: 059
     Dates: start: 20100817

REACTIONS (2)
  - Menstrual disorder [Not Recovered/Not Resolved]
  - Incorrect drug administration duration [Unknown]
